FAERS Safety Report 20474757 (Version 7)
Quarter: 2025Q4

REPORT INFORMATION
  Report Type: Report from Study
  Country: CA (occurrence: CA)
  Receive Date: 20220215
  Receipt Date: 20251114
  Transmission Date: 20260118
  Serious: Yes (Hospitalization, Other)
  Sender: TAKEDA
  Company Number: CA-TAKEDA-2021TUS026800

PATIENT
  Age: 50 Year
  Sex: Female

DRUGS (14)
  1. VEDOLIZUMAB [Suspect]
     Active Substance: VEDOLIZUMAB
     Indication: Crohn^s disease
     Dosage: 300 MILLIGRAM
  2. VEDOLIZUMAB [Suspect]
     Active Substance: VEDOLIZUMAB
     Dosage: 300 MILLIGRAM, Q4WEEKS
     Dates: start: 20211014
  3. VEDOLIZUMAB [Suspect]
     Active Substance: VEDOLIZUMAB
     Dosage: 300 MILLIGRAM, Q4WEEKS
  4. VEDOLIZUMAB [Suspect]
     Active Substance: VEDOLIZUMAB
     Dosage: 300 MILLIGRAM, Q4WEEKS
  5. VEDOLIZUMAB [Suspect]
     Active Substance: VEDOLIZUMAB
     Dosage: 300 MILLIGRAM, Q4WEEKS
  6. IMURAN [Concomitant]
     Active Substance: AZATHIOPRINE
     Dosage: UNK
  7. PREDNISONE [Concomitant]
     Active Substance: PREDNISONE
     Dosage: 40 MILLIGRAM
  8. CLONIDINE [Concomitant]
     Active Substance: CLONIDINE
     Dosage: UNK
  9. DESIPRAMINE [Concomitant]
     Active Substance: DESIPRAMINE
     Dosage: UNK
  10. ESCITALOPRAM [Concomitant]
     Active Substance: ESCITALOPRAM OXALATE
     Dosage: UNK
  11. HYDROMORPHONE [Concomitant]
     Active Substance: HYDROMORPHONE
     Dosage: 2 MILLIGRAM
  12. TRAZODONE [Concomitant]
     Active Substance: TRAZODONE HYDROCHLORIDE
     Dosage: UNK
  13. PANTOPRAZOLE [Concomitant]
     Active Substance: PANTOPRAZOLE
     Dosage: UNK
  14. DILAUDID [Concomitant]
     Active Substance: HYDROMORPHONE HYDROCHLORIDE
     Dosage: UNK

REACTIONS (17)
  - Crohn^s disease [Unknown]
  - Volvulus [Unknown]
  - Frequent bowel movements [Unknown]
  - Dyschezia [Unknown]
  - Gastrointestinal pain [Unknown]
  - Diarrhoea [Unknown]
  - Irritable bowel syndrome [Unknown]
  - Gamma-glutamyltransferase increased [Unknown]
  - Blood thyroid stimulating hormone increased [Unknown]
  - Blood creatinine increased [Unknown]
  - Blood alkaline phosphatase increased [Unknown]
  - Abdominal pain [Unknown]
  - Feeling cold [Unknown]
  - Vomiting [Unknown]
  - Nausea [Unknown]
  - Fatigue [Unknown]
  - Pyrexia [Unknown]
